FAERS Safety Report 19161719 (Version 1)
Quarter: 2021Q2

REPORT INFORMATION
  Report Type: Spontaneous
  Country: US (occurrence: US)
  Receive Date: 20210420
  Receipt Date: 20210420
  Transmission Date: 20210717
  Serious: Yes (Other)
  Sender: FDA-Public Use
  Company Number: US-PURDUE-USA-2020-0196009

PATIENT
  Sex: Male

DRUGS (2)
  1. TRAMADOL. [Suspect]
     Active Substance: TRAMADOL
     Indication: PAIN
     Dosage: UNKNOWN
     Route: 065
  2. HYDROCODONE BITARTRATE AND ACETAMINOPHEN [Suspect]
     Active Substance: ACETAMINOPHEN\HYDROCODONE BITARTRATE
     Indication: PAIN
     Dosage: 10?325 MG
     Route: 048

REACTIONS (8)
  - Drug dependence [Unknown]
  - Dysuria [Unknown]
  - Depression [Unknown]
  - Weight decreased [Unknown]
  - Overdose [Unknown]
  - Chills [Unknown]
  - Anxiety [Unknown]
  - Pyrexia [Unknown]
